FAERS Safety Report 7454180-4 (Version None)
Quarter: 2011Q2

REPORT INFORMATION
  Report Type: 
  Country: None (occurrence: None)
  Receive Date: 20110503
  Receipt Date: 20110426
  Transmission Date: 20111010
  Serious: No
  Sender: FDA-Public Use
  Company Number: US-BIOGENIDEC-2011BI015729

PATIENT
  Age: 47 Year
  Sex: Female

DRUGS (2)
  1. TYSABRI [Suspect]
     Indication: MULTIPLE SCLEROSIS
     Route: 042
     Dates: start: 20080821, end: 20110401
  2. TYSABRI [Suspect]
     Route: 042
     Dates: start: 20050109

REACTIONS (5)
  - BRONCHITIS [None]
  - DERMATITIS INFECTED [None]
  - INSOMNIA [None]
  - PAIN [None]
  - ARTHROPATHY [None]
